FAERS Safety Report 18341296 (Version 2)
Quarter: 2020Q4

REPORT INFORMATION
  Report Type: Report from Study
  Country: US (occurrence: US)
  Receive Date: 20201003
  Receipt Date: 20201005
  Transmission Date: 20210113
  Serious: Yes (Other)
  Sender: FDA-Public Use
  Company Number: US-TEVA-2020-US-1833769

PATIENT
  Sex: Male

DRUGS (1)
  1. COPAXONE [Suspect]
     Active Substance: GLATIRAMER ACETATE
     Dosage: FORM STRENGTH UNKNOWN

REACTIONS (7)
  - Feeling hot [Unknown]
  - Rash [Recovered/Resolved]
  - Injection site rash [Recovered/Resolved]
  - Cough [Unknown]
  - Myalgia [Unknown]
  - Dyspnoea [Unknown]
  - Chills [Unknown]
